FAERS Safety Report 5188157-9 (Version None)
Quarter: 2006Q4

REPORT INFORMATION
  Report Type: 
  Country: None (occurrence: None)
  Receive Date: 20061220
  Receipt Date: 20061213
  Transmission Date: 20070319
  Serious: Yes (Hospitalization)
  Sender: FDA-Public Use
  Company Number: DL2006509

PATIENT
  Age: 28 Year
  Sex: Female

DRUGS (2)
  1. MIFEPRISTONE TABLETS, 200 MG (DANCO LABS) [Suspect]
     Indication: ABORTION INDUCED
     Dosage: 200 MG, ORAL
     Route: 048
     Dates: start: 20061027
  2. MISOPROSTOL [Suspect]

REACTIONS (4)
  - ABORTION INDUCED [None]
  - ARTERIOSPASM CORONARY [None]
  - CHEST PAIN [None]
  - DYSPNOEA [None]
